FAERS Safety Report 16274086 (Version 2)
Quarter: 2019Q2

REPORT INFORMATION
  Report Type: Spontaneous
  Country: US (occurrence: US)
  Receive Date: 20190506
  Receipt Date: 20190613
  Transmission Date: 20190711
  Serious: No
  Sender: FDA-Public Use
  Company Number: US-GLAXOSMITHKLINE-US2019AMR076557

PATIENT
  Sex: Female
  Weight: 125 kg

DRUGS (2)
  1. LAMICTAL XR [Suspect]
     Active Substance: LAMOTRIGINE
     Indication: POST-TRAUMATIC STRESS DISORDER
     Dosage: UNK
     Route: 048
     Dates: start: 2014
  2. LAMICTAL XR [Suspect]
     Active Substance: LAMOTRIGINE
     Indication: AGORAPHOBIA

REACTIONS (1)
  - Nasopharyngitis [Recovered/Resolved]
